FAERS Safety Report 18633113 (Version 1)
Quarter: 2020Q4

REPORT INFORMATION
  Report Type: Spontaneous
  Country: US (occurrence: US)
  Receive Date: 20201217
  Receipt Date: 20201217
  Transmission Date: 20210114
  Serious: Yes (Other)
  Sender: FDA-Public Use
  Company Number: None

PATIENT
  Age: 44 Year
  Sex: Female
  Weight: 68.85 kg

DRUGS (1)
  1. UP AND UP INTENSIVE HEALING [Suspect]
     Active Substance: HYDROCORTISONE
     Indication: DRY SKIN
     Route: 061

REACTIONS (1)
  - Cataract [None]

NARRATIVE: CASE EVENT DATE: 20201208
